FAERS Safety Report 25343878 (Version 2)
Quarter: 2025Q2

REPORT INFORMATION
  Report Type: Spontaneous
  Country: US (occurrence: US)
  Receive Date: 20250521
  Receipt Date: 20250602
  Transmission Date: 20250716
  Serious: No
  Sender: SANOFI AVENTIS
  Company Number: US-SA-2025SA143820

PATIENT
  Age: 62 Year
  Sex: Male
  Weight: 94.966 kg

DRUGS (14)
  1. DUPIXENT [Suspect]
     Active Substance: DUPILUMAB
     Indication: Asthma
     Route: 058
     Dates: start: 202505, end: 202505
  2. DUPIXENT [Suspect]
     Active Substance: DUPILUMAB
     Dosage: 200 MG, QOW
     Route: 058
     Dates: start: 2025
  3. MONTELUKAST SODIUM [Concomitant]
     Active Substance: MONTELUKAST SODIUM
  4. PROTONIX [Concomitant]
     Active Substance: PANTOPRAZOLE SODIUM
  5. ERYTHROMYCIN [Concomitant]
     Active Substance: ERYTHROMYCIN
  6. CARVEDILOL [Concomitant]
     Active Substance: CARVEDILOL
  7. VITAMINS [Concomitant]
     Active Substance: VITAMINS
  8. IRON [Concomitant]
     Active Substance: IRON
  9. PULMICORT TURBUHALER [Concomitant]
     Active Substance: BUDESONIDE
  10. ALBUTEROL SULFATE [Concomitant]
     Active Substance: ALBUTEROL SULFATE
  11. ANORO ELLIPTA [Concomitant]
     Active Substance: UMECLIDINIUM BROMIDE\VILANTEROL TRIFENATATE
  12. QVAR REDIHALER [Concomitant]
     Active Substance: BECLOMETHASONE DIPROPIONATE
  13. ERGOCALCIFEROL [Concomitant]
     Active Substance: ERGOCALCIFEROL
  14. AMLODIPINE\HYDROCHLOROTHIAZIDE\VALSARTAN [Concomitant]
     Active Substance: AMLODIPINE\HYDROCHLOROTHIAZIDE\VALSARTAN

REACTIONS (2)
  - Abdominal discomfort [Unknown]
  - Headache [Unknown]

NARRATIVE: CASE EVENT DATE: 20250501
